FAERS Safety Report 22040191 (Version 1)
Quarter: 2023Q1

REPORT INFORMATION
  Report Type: Other
  Country: KR (occurrence: None)
  Receive Date: 20230227
  Receipt Date: 20230227
  Transmission Date: 20230418
  Serious: Yes (Other)
  Sender: FDA-Public Use
  Company Number: KR-ROCHE-3291863

PATIENT
  Age: 45 Year
  Sex: Female

DRUGS (9)
  1. PERTUZUMAB [Suspect]
     Active Substance: PERTUZUMAB
     Indication: Breast cancer
     Route: 042
     Dates: start: 2017, end: 201807
  2. PERTUZUMAB [Suspect]
     Active Substance: PERTUZUMAB
     Indication: Lung neoplasm malignant
  3. PERTUZUMAB [Suspect]
     Active Substance: PERTUZUMAB
     Indication: Metastases to lymph nodes
  4. DOCETAXEL [Suspect]
     Active Substance: DOCETAXEL
     Indication: Metastases to lymph nodes
     Route: 042
     Dates: start: 2017, end: 201807
  5. DOCETAXEL [Suspect]
     Active Substance: DOCETAXEL
     Indication: Breast cancer
  6. DOCETAXEL [Suspect]
     Active Substance: DOCETAXEL
     Indication: Lung neoplasm malignant
  7. TRASTUZUMAB [Suspect]
     Active Substance: TRASTUZUMAB
     Indication: Metastases to lymph nodes
     Route: 042
     Dates: start: 2017, end: 201807
  8. TRASTUZUMAB [Suspect]
     Active Substance: TRASTUZUMAB
     Indication: Breast cancer
  9. TRASTUZUMAB [Suspect]
     Active Substance: TRASTUZUMAB
     Indication: Lung neoplasm malignant

REACTIONS (1)
  - Toxic cardiomyopathy [Recovered/Resolved]

NARRATIVE: CASE EVENT DATE: 20190104
